FAERS Safety Report 9268437 (Version 1)
Quarter: 2013Q2

REPORT INFORMATION
  Report Type: Spontaneous
  Country: US (occurrence: US)
  Receive Date: 20130502
  Receipt Date: 20130502
  Transmission Date: 20140414
  Serious: No
  Sender: FDA-Public Use
  Company Number: US-ALEXION-A201202042

PATIENT
  Age: 40 Year
  Sex: Female
  Weight: 60.23 kg

DRUGS (2)
  1. SOLIRIS 300MG [Suspect]
     Indication: PAROXYSMAL NOCTURNAL HAEMOGLOBINURIA
     Dosage: UNK, Q2W
     Route: 042
  2. TOPROL XL [Concomitant]
     Indication: HYPERTENSION
     Dosage: 25 MG, QD

REACTIONS (1)
  - Blood pressure increased [Recovered/Resolved]
